FAERS Safety Report 19768176 (Version 4)
Quarter: 2023Q1

REPORT INFORMATION
  Report Type: Spontaneous
  Country: US (occurrence: US)
  Receive Date: 20210830
  Receipt Date: 20230110
  Transmission Date: 20230418
  Serious: No
  Sender: FDA-Public Use
  Company Number: US-BRISTOL-MYERS SQUIBB COMPANY-BMS-2021-086088

PATIENT
  Age: 61 Year
  Sex: Female

DRUGS (2)
  1. ORENCIA [Suspect]
     Active Substance: ABATACEPT
     Indication: Rheumatoid arthritis
     Route: 058
     Dates: start: 20170207
  2. ORENCIA [Suspect]
     Active Substance: ABATACEPT
     Dosage: ONGOING
     Route: 058
     Dates: start: 201702

REACTIONS (3)
  - Joint swelling [Unknown]
  - Arthralgia [Unknown]
  - Arthritis [Unknown]

NARRATIVE: CASE EVENT DATE: 20210701
